FAERS Safety Report 10774916 (Version 1)
Quarter: 2015Q1

REPORT INFORMATION
  Report Type: Spontaneous
  Country: US (occurrence: None)
  Receive Date: 20150206
  Receipt Date: 20150206
  Transmission Date: 20150721
  Serious: Yes (Hospitalization)
  Sender: FDA-Public Use
  Company Number: HYP201409-000066

PATIENT
  Age: 16 Year
  Sex: Female
  Weight: 53.1 kg

DRUGS (4)
  1. CITRULLINE [Concomitant]
     Active Substance: CITRULLINE
  2. L-LEUCINE (LEUCINE) [Concomitant]
  3. AMINO ACIDS [Suspect]
     Active Substance: AMINO ACIDS
     Route: 048
  4. RAVICTI [Suspect]
     Active Substance: GLYCEROL PHENYLBUTYRATE
     Indication: UREA CYCLE ENZYME DEFICIENCY
     Route: 048
     Dates: start: 201406

REACTIONS (4)
  - Pyrexia [None]
  - Gastroenteritis viral [None]
  - Hyperammonaemic crisis [None]
  - Vomiting [None]

NARRATIVE: CASE EVENT DATE: 20140916
